FAERS Safety Report 26128261 (Version 2)
Quarter: 2025Q4

REPORT INFORMATION
  Report Type: Spontaneous
  Country: US (occurrence: US)
  Receive Date: 20251207
  Receipt Date: 20251226
  Transmission Date: 20260117
  Serious: Yes (Hospitalization, Other)
  Sender: LUPIN
  Company Number: US-LUPIN PHARMACEUTICALS INC.-2025-10904

PATIENT

DRUGS (4)
  1. LISINOPRIL AND HYDROCHLOROTHIAZIDE [Interacting]
     Active Substance: HYDROCHLOROTHIAZIDE\LISINOPRIL
     Indication: Hypertension
     Dosage: UNK
     Route: 065
  2. ATAZANAVIR\RITONAVIR [Interacting]
     Active Substance: ATAZANAVIR\RITONAVIR
     Indication: Product used for unknown indication
     Dosage: UNK
     Route: 065
  3. FENTANYL [Suspect]
     Active Substance: FENTANYL
     Indication: Sedation
     Dosage: UNK
     Route: 065
  4. DEXMEDETOMIDINE [Suspect]
     Active Substance: DEXMEDETOMIDINE
     Indication: Sedation
     Dosage: UNK
     Route: 065

REACTIONS (9)
  - Cardiac arrest [Recovered/Resolved]
  - Hypokalaemia [Recovered/Resolved]
  - Ventricular tachycardia [Recovered/Resolved]
  - Diarrhoea [Recovered/Resolved]
  - Drug interaction [Unknown]
  - Toxicity to various agents [Unknown]
  - Recalled product administered [Unknown]
  - Recalled product [Unknown]
  - Product dispensing error [Unknown]
